FAERS Safety Report 7225138-5 (Version None)
Quarter: 2011Q1

REPORT INFORMATION
  Report Type: 
  Country: None (occurrence: None)
  Receive Date: 20110113
  Receipt Date: 20110110
  Transmission Date: 20110831
  Serious: Yes (Death, Hospitalization)
  Sender: FDA-Public Use
  Company Number: A0899948A

PATIENT
  Sex: Male

DRUGS (16)
  1. ATENOLOL [Concomitant]
     Route: 065
  2. ATACAND [Concomitant]
     Route: 065
  3. LASIX [Concomitant]
     Route: 065
  4. BLOOD PRESSURE MEDICATION [Suspect]
     Route: 065
  5. CALCIUM [Concomitant]
     Route: 065
  6. PANTOPRAZOLE [Concomitant]
     Route: 065
  7. VOTRIENT [Suspect]
     Indication: RENAL CANCER METASTATIC
     Dosage: 400MG TWICE PER DAY
     Route: 048
     Dates: start: 20100901
  8. CARDIZEM [Concomitant]
     Route: 065
  9. TYLENOL W/ CODEINE NO. 3 [Concomitant]
     Route: 065
  10. ADVAIR HFA [Concomitant]
     Route: 065
  11. VITAMIN D [Concomitant]
     Route: 065
  12. NORVASC [Concomitant]
     Route: 065
  13. SINGULAIR [Concomitant]
     Route: 065
  14. BENADRYL [Concomitant]
     Route: 065
  15. ALBUTEROL [Concomitant]
     Route: 065
  16. IMODIUM [Concomitant]
     Route: 065

REACTIONS (2)
  - DEATH [None]
  - HYPOTENSION [None]
